FAERS Safety Report 17115459 (Version 1)
Quarter: 2019Q4

REPORT INFORMATION
  Report Type: Spontaneous
  Country: SE (occurrence: SE)
  Receive Date: 20191205
  Receipt Date: 20191205
  Transmission Date: 20200122
  Serious: Yes (Hospitalization)
  Sender: FDA-Public Use
  Company Number: SE-PFIZER INC-2019521486

PATIENT
  Age: 33 Year
  Sex: Female

DRUGS (6)
  1. ZOPICLONE [Suspect]
     Active Substance: ZOPICLONE
     Dosage: 112.5 MG, UNK
     Route: 048
     Dates: start: 20180802, end: 20180802
  2. SERTRALINE HCL [Suspect]
     Active Substance: SERTRALINE HYDROCHLORIDE
     Dosage: 1050 MG, UNK
     Route: 048
     Dates: start: 20180802, end: 20180802
  3. PROPAVAN [Suspect]
     Active Substance: PROPIOMAZINE
     Dosage: UNK (28 PROPAVAN)
     Route: 048
     Dates: start: 20180802, end: 20180802
  4. LAMOTRIGINE. [Suspect]
     Active Substance: LAMOTRIGINE
     Dosage: UNK (7 LAMOTRIGIN)
     Route: 048
     Dates: start: 20180802, end: 20180802
  5. ALIMEMAZINE [Suspect]
     Active Substance: TRIMEPRAZINE
     Dosage: 200 MG, UNK
     Route: 048
     Dates: start: 20180802, end: 20180802
  6. LERGIGAN [PROMETHAZINE HYDROCHLORIDE] [Suspect]
     Active Substance: PROMETHAZINE HYDROCHLORIDE
     Dosage: 1600 MG, UNK
     Route: 048
     Dates: start: 20180802, end: 20180802

REACTIONS (3)
  - Intentional overdose [Unknown]
  - Intentional self-injury [Unknown]
  - Electrocardiogram ST segment elevation [Unknown]

NARRATIVE: CASE EVENT DATE: 20180802
